FAERS Safety Report 20089926 (Version 6)
Quarter: 2022Q1

REPORT INFORMATION
  Report Type: Spontaneous
  Country: CA (occurrence: CA)
  Receive Date: 20211119
  Receipt Date: 20220331
  Transmission Date: 20220423
  Serious: Yes (Other)
  Sender: FDA-Public Use
  Company Number: CA-CELLTRION INC.-2021CA000538

PATIENT

DRUGS (7)
  1. INFLECTRA [Suspect]
     Active Substance: INFLIXIMAB-DYYB
     Indication: Crohn^s disease
     Dosage: 300 MG EVERY 6 WEEKS (INDUCTION), THEN EVERY 6 WEEKS
     Route: 042
     Dates: start: 20210127
  2. INFLECTRA [Suspect]
     Active Substance: INFLIXIMAB-DYYB
     Dosage: 300 MG EVERY 6 WEEKS (INDUCTION), THEN EVERY 6 WEEKS
     Route: 042
     Dates: start: 20210312
  3. INFLECTRA [Suspect]
     Active Substance: INFLIXIMAB-DYYB
     Dosage: 300 MG EVERY 6 WEEKS (INDUCTION), THEN EVERY 6 WEEKS
     Route: 042
     Dates: start: 20210419
  4. INFLECTRA [Suspect]
     Active Substance: INFLIXIMAB-DYYB
     Dosage: 300 MG EVERY 6 WEEKS (INDUCTION), THEN EVERY 6 WEEKS
     Route: 042
     Dates: start: 20210529
  5. INFLECTRA [Suspect]
     Active Substance: INFLIXIMAB-DYYB
     Dosage: 300 MG EVERY 6 WEEKS (INDUCTION), THEN EVERY 6 WEEKS
     Route: 042
     Dates: start: 20210818
  6. INFLECTRA [Suspect]
     Active Substance: INFLIXIMAB-DYYB
     Dosage: 300 MG EVERY 6 WEEKS (INDUCTION), THEN EVERY 6 WEEKS
     Route: 042
     Dates: start: 20211109
  7. INFLECTRA [Suspect]
     Active Substance: INFLIXIMAB-DYYB
     Dosage: 300 MG EVERY 6 WEEKS (INDUCTION), THEN EVERY 6 WEEKS
     Route: 042
     Dates: start: 20211215

REACTIONS (9)
  - Dehydration [Unknown]
  - Renal impairment [Not Recovered/Not Resolved]
  - Off label use [Unknown]
  - Off label use [Unknown]
  - Intentional product use issue [Unknown]
  - Product prescribing error [Unknown]
  - Condition aggravated [Unknown]
  - Poor venous access [Unknown]
  - Back pain [Not Recovered/Not Resolved]

NARRATIVE: CASE EVENT DATE: 20210101
